FAERS Safety Report 8423796-0 (Version None)
Quarter: 2012Q2

REPORT INFORMATION
  Report Type: 
  Country: None (occurrence: None)
  Receive Date: 20120608
  Receipt Date: 20110815
  Transmission Date: 20120825
  Serious: No
  Sender: FDA-Public Use
  Company Number: US-ASTRAZENECA-2011SE19285

PATIENT
  Age: 85 Year
  Sex: Female

DRUGS (2)
  1. ATACAND [Suspect]
     Route: 048
  2. VITAMIN D [Concomitant]

REACTIONS (4)
  - LIMB INJURY [None]
  - FACE INJURY [None]
  - FALL [None]
  - UPPER LIMB FRACTURE [None]
